FAERS Safety Report 10937047 (Version 1)
Quarter: 2015Q1

REPORT INFORMATION
  Report Type: Spontaneous
  Country: US (occurrence: None)
  Receive Date: 20150212
  Receipt Date: 20150212
  Transmission Date: 20150721
  Serious: No
  Sender: FDA-Public Use
  Company Number: TPA2011A04758

PATIENT
  Sex: Female

DRUGS (3)
  1. TYLENOL PM (PARACETAMOL, DIPHENHYDRAMINE HYDROCHLORIDE) [Concomitant]
  2. ULORIC [Suspect]
     Active Substance: FEBUXOSTAT
     Indication: BLOOD URIC ACID INCREASED
     Route: 048
     Dates: start: 20110407, end: 201107
  3. ULORIC [Suspect]
     Active Substance: FEBUXOSTAT
     Indication: GOUT
     Route: 048
     Dates: start: 20110407, end: 201107

REACTIONS (1)
  - Fluid retention [None]

NARRATIVE: CASE EVENT DATE: 2011
